FAERS Safety Report 9663751 (Version 1)
Quarter: 2013Q4

REPORT INFORMATION
  Report Type: Spontaneous
  Country: CH (occurrence: None)
  Receive Date: 20131030
  Receipt Date: 20131030
  Transmission Date: 20140711
  Serious: No
  Sender: FDA-Public Use
  Company Number: None

PATIENT
  Age: 36 Year
  Sex: Male
  Weight: 74 kg

DRUGS (1)
  1. PROPECIA [Suspect]
     Indication: ANDROGENETIC ALOPECIA
     Dosage: 1 PILL ONCE DAILY TAKEN BY MOUTH
     Route: 048
     Dates: start: 19991101, end: 20111108

REACTIONS (32)
  - Loss of libido [None]
  - Sexual dysfunction [None]
  - Erectile dysfunction [None]
  - Ejaculation failure [None]
  - Ejaculation disorder [None]
  - Sperm concentration decreased [None]
  - Mental impairment [None]
  - Blunted affect [None]
  - Flat affect [None]
  - Disturbance in attention [None]
  - Confusional state [None]
  - Amnesia [None]
  - Memory impairment [None]
  - Aphasia [None]
  - Thought blocking [None]
  - Dysarthria [None]
  - Apathy [None]
  - Depression [None]
  - Major depression [None]
  - Penis disorder [None]
  - Testicular atrophy [None]
  - Genital hypoaesthesia [None]
  - Weight increased [None]
  - Gynaecomastia [None]
  - Muscle atrophy [None]
  - Muscular weakness [None]
  - Fatigue [None]
  - Dyspepsia [None]
  - Pollakiuria [None]
  - Erectile dysfunction [None]
  - Organic erectile dysfunction [None]
  - Erectile dysfunction [None]
